FAERS Safety Report 15007315 (Version 1)
Quarter: 2018Q2

REPORT INFORMATION
  Report Type: Spontaneous
  Country: GB (occurrence: GB)
  Receive Date: 20180613
  Receipt Date: 20180613
  Transmission Date: 20180711
  Serious: Yes (Hospitalization)
  Sender: FDA-Public Use
  Company Number: GB-TEVA-2018-GB-905376

PATIENT
  Age: 97 Year

DRUGS (14)
  1. SIMVASTATIN. [Concomitant]
     Active Substance: SIMVASTATIN
     Dosage: 20 MILLIGRAM DAILY; EACH NIGHT.
  2. ACETYLSALICYLIC ACID [Concomitant]
     Active Substance: ASPIRIN
     Dosage: 75 MILLIGRAM DAILY;
  3. LIQUIFILM TEARS [Concomitant]
     Active Substance: POLYVINYL ALCOHOL
     Dosage: USE AS DIRECTED.
  4. OMEPRAZOLE. [Concomitant]
     Active Substance: OMEPRAZOLE
     Dosage: 20 MILLIGRAM DAILY; EACH MORNING.
  5. PARACETAMOL [Concomitant]
     Active Substance: ACETAMINOPHEN
     Dosage: TWO TO BE TAKEN REGULARLY; 3 OR 4 TIMES DAILY
  6. FUROSEMIDE. [Suspect]
     Active Substance: FUROSEMIDE
     Dosage: 80 MILLIGRAM DAILY; MORNING AND LUNCHTIME.
     Route: 065
  7. HYDROMOL CREAM [Concomitant]
     Dosage: APPLY TO SKIN OR USE AS A SOAP SUBSTITUTE.
  8. BISOPROLOL [Concomitant]
     Active Substance: BISOPROLOL
     Dosage: 1.25 MILLIGRAM DAILY; EACH MORNING.
  9. MACROGOL [Concomitant]
     Active Substance: POLYETHYLENE GLYCOLS
     Dosage: 13.7 GRAM DAILY;
  10. CODEINE [Concomitant]
     Active Substance: CODEINE
     Dosage: 90 MILLIGRAM DAILY;
  11. DICLOFENAC [Suspect]
     Active Substance: DICLOFENAC
     Dosage: 2 TIMES A DAY
     Route: 065
  12. FULTIUM-D3 [Concomitant]
     Active Substance: CHOLECALCIFEROL
  13. E45 [Concomitant]
     Active Substance: LANOLIN\LIGHT MINERAL OIL\PARAFFIN
     Indication: PRURITUS
     Dosage: 2 DOSAGE FORMS DAILY;
  14. FEXOFENADINE [Concomitant]
     Active Substance: FEXOFENADINE\FEXOFENADINE HYDROCHLORIDE
     Dosage: 180 MILLIGRAM DAILY;

REACTIONS (1)
  - Acute kidney injury [Recovered/Resolved]

NARRATIVE: CASE EVENT DATE: 20171017
